FAERS Safety Report 6827415-6 (Version None)
Quarter: 2010Q3

REPORT INFORMATION
  Report Type: 
  Country: None (occurrence: None)
  Receive Date: 20100709
  Receipt Date: 20070115
  Transmission Date: 20110219
  Serious: Yes (Other)
  Sender: FDA-Public Use
  Company Number: US-PFIZER INC-2007004186

PATIENT
  Sex: Female
  Weight: 65.3 kg

DRUGS (2)
  1. CHANTIX [Suspect]
     Indication: SMOKING CESSATION THERAPY
     Dosage: DAILY
     Route: 048
     Dates: start: 20060901, end: 20070112
  2. ZOLOFT [Concomitant]

REACTIONS (10)
  - ABDOMINAL PAIN [None]
  - CONSTIPATION [None]
  - DIZZINESS [None]
  - FLANK PAIN [None]
  - NAUSEA [None]
  - NEPHROLITHIASIS [None]
  - POLYURIA [None]
  - SOMNOLENCE [None]
  - STRESS [None]
  - TOBACCO USER [None]
